FAERS Safety Report 8976564 (Version 1)
Quarter: 2012Q4

REPORT INFORMATION
  Report Type: 
  Country: US (occurrence: US)
  Receive Date: 20121219
  Receipt Date: 20121219
  Transmission Date: 20130627
  Serious: No
  Sender: FDA-Public Use
  Company Number: US-AMGEN-USASP2012059609

PATIENT
  Age: 60 Year
  Sex: Female
  Weight: 78.46 kg

DRUGS (8)
  1. PROLIA [Suspect]
     Indication: OSTEOPOROSIS POSTMENOPAUSAL
     Dosage: UNK
     Dates: start: 201204
  2. NAPROSYN /00256201/ [Concomitant]
     Indication: PAIN
     Dosage: 500 mg, prn
     Route: 048
     Dates: start: 20120919
  3. XANAX [Concomitant]
     Indication: INSOMNIA
     Dosage: 0.5 mg, prn
     Route: 048
     Dates: start: 20110727
  4. XANAX [Concomitant]
     Indication: ANXIETY
  5. WELLBUTRIN XL [Concomitant]
     Indication: DEPRESSION
     Dosage: 300 mg, qd
     Route: 048
     Dates: start: 20100924
  6. WELLBUTRIN XL [Concomitant]
     Indication: ANXIETY
  7. AMBIEN [Concomitant]
     Indication: INSOMNIA
     Dosage: 10 mg, prn
     Route: 048
     Dates: start: 20120926
  8. VITAMIN D /00107901/ [Concomitant]
     Indication: VITAMIN D DEFICIENCY
     Dosage: 2000 IU, qd
     Route: 048
     Dates: start: 20120926

REACTIONS (6)
  - Arthralgia [Not Recovered/Not Resolved]
  - Pain [Not Recovered/Not Resolved]
  - Joint swelling [Not Recovered/Not Resolved]
  - Arthropathy [Not Recovered/Not Resolved]
  - Back pain [Not Recovered/Not Resolved]
  - Constipation [Not Recovered/Not Resolved]
